FAERS Safety Report 5892308-8 (Version None)
Quarter: 2008Q3

REPORT INFORMATION
  Report Type: 
  Country: None (occurrence: None)
  Receive Date: 20080919
  Receipt Date: 20080910
  Transmission Date: 20090109
  Serious: Yes (Life-Threatening, Hospitalization, Other)
  Sender: FDA-Public Use
  Company Number: 2008-02154

PATIENT
  Age: 79 Year
  Sex: Male
  Weight: 60.3 kg

DRUGS (13)
  1. VELCADE [Suspect]
     Indication: LUNG CARCINOMA CELL TYPE UNSPECIFIED RECURRENT
     Dosage: 3.4 MG, INTRAVENOUS
     Route: 042
     Dates: start: 20080507, end: 20080604
  2. ALIMTA [Suspect]
     Indication: LUNG CARCINOMA CELL TYPE UNSPECIFIED RECURRENT
     Dosage: 855 MG, INTRAVENOUS
     Route: 042
     Dates: start: 20080507, end: 20080604
  3. MULTIVITAMINS (ERGOCALCIFEROL, PANTHENOL, NICOTINAMIDE, RIBOFLAVIN, TH [Concomitant]
  4. KELP (KELP) [Concomitant]
  5. ASPIRIN [Concomitant]
  6. PERCOCET [Concomitant]
  7. DEXAMETHASONE [Concomitant]
  8. FOLIC ACID [Concomitant]
  9. COMPAZINE [Concomitant]
  10. LORAZEPAM [Concomitant]
  11. VITAMIN B12 [Concomitant]
  12. FENTANYL-100 [Concomitant]
  13. CELEBREX [Concomitant]

REACTIONS (9)
  - BLOOD GLUCOSE INCREASED [None]
  - DIZZINESS [None]
  - FALL [None]
  - HAEMATOCRIT DECREASED [None]
  - HYPOTENSION [None]
  - RESPIRATORY RATE INCREASED [None]
  - SEPSIS [None]
  - STAPHYLOCOCCAL INFECTION [None]
  - THROMBOCYTOPENIA [None]
